FAERS Safety Report 8954930 (Version 1)
Quarter: 2012Q4

REPORT INFORMATION
  Report Type: Report from Study
  Country: FR (occurrence: FR)
  Receive Date: 20121207
  Receipt Date: 20121207
  Transmission Date: 20130627
  Serious: Yes (Hospitalization, Other)
  Sender: FDA-Public Use
  Company Number: FR-BAXTER-2012BAX025739

PATIENT
  Age: 6 Year
  Sex: Male
  Weight: 26.4 kg

DRUGS (71)
  1. HOLOXAN [Suspect]
     Indication: SARCOMA
     Route: 042
     Dates: start: 20091008
  2. HOLOXAN [Suspect]
     Route: 042
     Dates: start: 20091030, end: 20091030
  3. CYCLOPHOSPHAMIDE [Suspect]
     Indication: SARCOMA
     Route: 048
     Dates: start: 20091123
  4. CYCLOPHOSPHAMIDE [Suspect]
     Route: 048
     Dates: start: 20100419, end: 20100813
  5. CYCLOPHOSPHAMIDE [Suspect]
     Route: 048
     Dates: start: 20100817, end: 20101220
  6. CYCLOPHOSPHAMIDE [Suspect]
     Route: 048
     Dates: start: 20101224
  7. NAVELBINE [Suspect]
     Indication: SARCOMA
     Route: 042
     Dates: start: 20090419, end: 20100502
  8. NAVELBINE [Suspect]
     Route: 042
  9. NAVELBINE [Suspect]
     Route: 042
     Dates: start: 20100517
  10. NAVELBINE [Suspect]
     Route: 042
     Dates: start: 20101208
  11. BEVACIZUMAB [Suspect]
     Indication: SARCOMA
     Route: 042
     Dates: start: 20091008
  12. BEVACIZUMAB [Suspect]
     Route: 042
     Dates: start: 20100419, end: 20101222
  13. BEVACIZUMAB [Suspect]
     Route: 042
     Dates: start: 20101230
  14. DOXORUBICINE [Suspect]
     Indication: SARCOMA
     Route: 042
     Dates: start: 20091008
  15. DOXORUBICINE [Suspect]
     Route: 042
     Dates: start: 20091215
  16. ACTINOMYCIN D [Suspect]
     Indication: SARCOMA
     Route: 042
     Dates: start: 20091008
  17. ACTINOMYCIN D [Suspect]
     Route: 042
     Dates: start: 20091008
  18. ACTINOMYCIN D [Suspect]
     Route: 042
     Dates: start: 20091008
  19. VINCRISTINE [Suspect]
     Indication: SARCOMA
     Route: 042
     Dates: start: 20091008, end: 20091022
  20. VINCRISTINE [Suspect]
     Route: 042
     Dates: start: 20091030, end: 20091113
  21. VINCRISTINE [Suspect]
     Route: 042
     Dates: start: 20091120
  22. VINCRISTINE [Suspect]
     Route: 042
     Dates: start: 20100419
  23. MORPHINE [Suspect]
     Indication: DRUG USE FOR UNKNOWN INDICATION
     Route: 065
     Dates: start: 20091018, end: 20091019
  24. MORPHINE [Suspect]
     Indication: MUCOSITIS
     Route: 065
     Dates: start: 20091019, end: 20091019
  25. MORPHINE [Suspect]
     Dosage: DOSE AS HALF
     Route: 065
     Dates: start: 20091020
  26. MORPHINE [Suspect]
     Route: 065
     Dates: start: 20091130
  27. MORPHINE [Suspect]
     Route: 065
     Dates: start: 20100109, end: 20100114
  28. MORPHINE [Suspect]
     Route: 065
     Dates: start: 20100430
  29. MORPHINE [Suspect]
     Route: 065
     Dates: start: 20091016
  30. MORPHINE [Suspect]
     Route: 065
     Dates: start: 20100104
  31. UROMITEXAN [Concomitant]
     Indication: DRUG USE FOR UNKNOWN INDICATION
     Route: 065
     Dates: start: 20091008, end: 20091009
  32. UROMITEXAN [Concomitant]
     Route: 065
     Dates: start: 20091029, end: 20091031
  33. ZOPHREN [Concomitant]
     Indication: DRUG USE FOR UNKNOWN INDICATION
     Route: 065
     Dates: start: 20091008, end: 20091010
  34. ZOPHREN [Concomitant]
     Indication: VOMITING
     Route: 065
     Dates: start: 20091009, end: 20091102
  35. DEXAMETHASONE [Concomitant]
     Indication: DRUG USE FOR UNKNOWN INDICATION
     Route: 065
     Dates: start: 20091008, end: 20091009
  36. DEXAMETHASONE [Concomitant]
     Indication: VOMITING
     Route: 065
     Dates: start: 20091029, end: 20091102
  37. NEURONTIN [Concomitant]
     Indication: DRUG USE FOR UNKNOWN INDICATION
     Route: 065
     Dates: start: 20091003, end: 20091012
  38. NEURONTIN [Concomitant]
     Route: 065
     Dates: start: 20091016, end: 20091205
  39. NEURONTIN [Concomitant]
     Route: 065
     Dates: start: 20091223
  40. NEURONTIN [Concomitant]
     Route: 065
     Dates: start: 20100308
  41. NEURONTIN [Concomitant]
     Route: 065
     Dates: start: 20100815
  42. ORAMORPH [Concomitant]
     Indication: DRUG USE FOR UNKNOWN INDICATION
     Route: 065
     Dates: start: 20091013, end: 20091106
  43. ORAMORPH [Concomitant]
     Route: 065
     Dates: start: 20091120, end: 20091130
  44. ORAMORPH [Concomitant]
     Route: 065
     Dates: start: 20091208
  45. ORAMORPH [Concomitant]
     Route: 065
     Dates: start: 20100108, end: 20100109
  46. SKENAN [Concomitant]
     Indication: DRUG USE FOR UNKNOWN INDICATION
     Route: 065
     Dates: start: 20091008, end: 20091106
  47. SKENAN [Concomitant]
     Route: 065
     Dates: start: 20091120, end: 20091130
  48. PARACETAMOL [Concomitant]
     Indication: DRUG USE FOR UNKNOWN INDICATION
     Route: 065
     Dates: start: 20091007, end: 20091008
  49. PARACETAMOL [Concomitant]
     Indication: MUCOSITIS
     Route: 065
     Dates: start: 20091018, end: 20091025
  50. PARACETAMOL [Concomitant]
     Indication: INFECTION
     Route: 065
     Dates: start: 20091029, end: 20091029
  51. PARACETAMOL [Concomitant]
     Route: 065
     Dates: start: 20100815
  52. PARACETAMOL [Concomitant]
     Route: 065
     Dates: start: 20091016
  53. PARACETAMOL [Concomitant]
     Route: 065
     Dates: start: 20091106
  54. PARACETAMOL [Concomitant]
     Route: 065
     Dates: start: 20091130
  55. PARACETAMOL [Concomitant]
     Route: 065
     Dates: start: 20091221, end: 20091222
  56. PARACETAMOL [Concomitant]
     Route: 065
     Dates: start: 20100104
  57. PARACETAMOL [Concomitant]
     Route: 065
     Dates: start: 20101220
  58. PLITICAN [Concomitant]
     Indication: DRUG USE FOR UNKNOWN INDICATION
     Route: 065
     Dates: start: 20091008, end: 20091009
  59. PLITICAN [Concomitant]
     Indication: VOMITING
     Route: 065
     Dates: start: 20091009
  60. FUNGIZONE [Concomitant]
     Indication: DRUG USE FOR UNKNOWN INDICATION
     Route: 065
     Dates: start: 20091018, end: 20091025
  61. LARGACTIL [Concomitant]
     Indication: DRUG USE FOR UNKNOWN INDICATION
     Dosage: 13
     Route: 065
     Dates: start: 20091029, end: 20091030
  62. LARGACTIL [Concomitant]
     Indication: VOMITING
     Route: 065
     Dates: start: 20091009
  63. MACROGOL [Concomitant]
     Indication: DRUG USE FOR UNKNOWN INDICATION
     Route: 065
     Dates: start: 20091027
  64. PENTACARINAT [Concomitant]
     Indication: DRUG USE FOR UNKNOWN INDICATION
     Route: 065
     Dates: start: 20091015
  65. PENTACARINAT [Concomitant]
     Route: 065
     Dates: start: 20091215
  66. INEXIUM [Concomitant]
     Indication: DRUG USE FOR UNKNOWN INDICATION
     Route: 065
     Dates: start: 20091107
  67. INEXIUM [Concomitant]
     Route: 065
     Dates: start: 20091208
  68. NEUPOGEN [Concomitant]
     Indication: DRUG USE FOR UNKNOWN INDICATION
     Route: 065
     Dates: start: 20091127
  69. PENTACARINAT [Concomitant]
     Indication: DRUG USE FOR UNKNOWN INDICATION
     Route: 065
     Dates: start: 20091215
  70. TRAMADOL [Concomitant]
     Indication: DRUG USE FOR UNKNOWN INDICATION
     Route: 065
     Dates: start: 20100814
  71. GABAPENTIN [Concomitant]
     Indication: DRUG USE FOR UNKNOWN INDICATION
     Route: 065
     Dates: start: 20100815

REACTIONS (13)
  - Vomiting [Recovered/Resolved]
  - Mucosal inflammation [Recovered/Resolved]
  - Febrile neutropenia [Recovered/Resolved]
  - Infection [Recovered/Resolved]
  - Diarrhoea [Recovered/Resolved]
  - Convulsion [Recovered/Resolved]
  - Overdose [Recovered/Resolved]
  - Salmonellosis [Recovered/Resolved]
  - Pyrexia [Recovered/Resolved]
  - Hypoventilation [Recovered/Resolved]
  - Hypertonia [None]
  - Mydriasis [None]
  - Chills [None]
